FAERS Safety Report 10721069 (Version 1)
Quarter: 2015Q1

REPORT INFORMATION
  Report Type: Spontaneous
  Country: US (occurrence: US)
  Receive Date: 20150119
  Receipt Date: 20150119
  Transmission Date: 20150721
  Serious: Yes (Other)
  Sender: FDA-Public Use
  Company Number: US-GLAXOSMITHKLINE-US2014GSK047215

PATIENT
  Sex: Male

DRUGS (5)
  1. FLOVENT [Suspect]
     Active Substance: FLUTICASONE PROPIONATE
     Indication: EMPHYSEMA
     Dosage: 1 PUFF(S), BID
  2. TIKOSYN [Concomitant]
     Active Substance: DOFETILIDE
  3. WATER PILL [Concomitant]
     Active Substance: UNSPECIFIED INGREDIENT
  4. TAMSULOSIN [Concomitant]
     Active Substance: TAMSULOSIN
  5. OXYCODONE [Concomitant]
     Active Substance: OXYCODONE

REACTIONS (9)
  - Throat irritation [Not Recovered/Not Resolved]
  - Candida infection [Unknown]
  - Eye disorder [Not Recovered/Not Resolved]
  - Dry mouth [Not Recovered/Not Resolved]
  - Tuberculosis [Unknown]
  - Hospitalisation [Unknown]
  - Amnesia [Unknown]
  - Upper respiratory tract infection [Not Recovered/Not Resolved]
  - Cataract operation [Not Recovered/Not Resolved]

NARRATIVE: CASE EVENT DATE: 2012
